FAERS Safety Report 8783982 (Version 1)
Quarter: 2012Q4

REPORT INFORMATION
  Report Type: Report from Study
  Country: US (occurrence: US)
  Receive Date: 20120913
  Receipt Date: 20120913
  Transmission Date: 20130627
  Serious: No
  Sender: FDA-Public Use
  Company Number: US-VERTEX PHARMACEUTICAL INC.-AE-2012-009324

PATIENT
  Age: 61 Year
  Sex: Male
  Weight: 126.36 kg

DRUGS (9)
  1. INCIVEK [Suspect]
     Indication: HEPATITIS C
     Route: 048
  2. RIBAVIRIN [Concomitant]
     Indication: HEPATITIS C
     Route: 048
  3. PEGASYS [Concomitant]
     Indication: HEPATITIS C
     Route: 058
  4. CENTRUM CHW SILVER [Concomitant]
     Route: 048
  5. GLUCOTROL XL [Concomitant]
     Route: 048
  6. PROCARDIA XL [Concomitant]
     Route: 048
  7. DEPAKOTE ER [Concomitant]
     Route: 048
  8. METOPROLOL ER [Concomitant]
     Route: 048
  9. PERCOCET [Concomitant]
     Route: 048

REACTIONS (1)
  - Rash [Unknown]
